FAERS Safety Report 6301783-6 (Version None)
Quarter: 2009Q3

REPORT INFORMATION
  Report Type: 
  Country: None (occurrence: None)
  Receive Date: 20090805
  Receipt Date: 20090723
  Transmission Date: 20100115
  Serious: Yes (Death)
  Sender: FDA-Public Use
  Company Number: DSJ-2009-09621

PATIENT
  Age: 6 Decade

DRUGS (2)
  1. OLMESARTAN MEDOXOMIL [Suspect]
     Indication: HYPERTENSION
     Dosage: 5 MG, PER ORAL; 10 MG, PER ORAL
     Route: 048
  2. INDAPAMIDE [Concomitant]

REACTIONS (1)
  - CARDIAC DISORDER [None]
